FAERS Safety Report 19710033 (Version 1)
Quarter: 2021Q3

REPORT INFORMATION
  Report Type: Spontaneous
  Country: DE (occurrence: DE)
  Receive Date: 20210816
  Receipt Date: 20210816
  Transmission Date: 20211014
  Serious: Yes (Hospitalization, Other)
  Sender: FDA-Public Use
  Company Number: DE-SA-2021SA263717

PATIENT
  Age: 69 Year
  Sex: Male
  Weight: 104 kg

DRUGS (9)
  1. MARCUMAR [Concomitant]
     Active Substance: PHENPROCOUMON
     Dosage: UNK
  2. BISOPROLOL [Concomitant]
     Active Substance: BISOPROLOL
     Dosage: 5 MG, (1?0?0?0)
  3. SIMVASTATIN. [Concomitant]
     Active Substance: SIMVASTATIN
     Dosage: 40 MG, QD ( 0?0?1?0)
  4. IODAMID [Concomitant]
     Dosage: 0.2 MG,(1?0?0?0)
  5. TOREMIFENE [Concomitant]
     Active Substance: TOREMIFENE
     Dosage: 10 MG, (0.5?0?0.5?0)
  6. ENOXAPARIN SODIUM. [Suspect]
     Active Substance: ENOXAPARIN SODIUM
     Dosage: 40 MG, (1?0?1?0)
  7. ALLOPURINOL. [Concomitant]
     Active Substance: ALLOPURINOL
     Dosage: 150 MG QD, (0?0?0.5?0)
  8. SPIRONOLACTON [Concomitant]
     Active Substance: SPIRONOLACTONE
     Dosage: 25 MG, QD (1?0?0?0)
  9. ALFACALCIDOL [Concomitant]
     Active Substance: ALFACALCIDOL
     Dosage: 0.25 ?G, SCHEMA

REACTIONS (3)
  - Subdural haematoma [Unknown]
  - Aphasia [Unknown]
  - General physical health deterioration [Unknown]
